FAERS Safety Report 5922711-9 (Version None)
Quarter: 2008Q3

REPORT INFORMATION
  Report Type: 
  Country: None (occurrence: None)
  Receive Date: 20080909
  Receipt Date: 20080710
  Transmission Date: 20090109
  Serious: Yes (Hospitalization)
  Sender: FDA-Public Use
  Company Number: 163-20785-08070556

PATIENT
  Age: 73 Year
  Sex: Male
  Weight: 70.1 kg

DRUGS (20)
  1. THALOMID [Suspect]
     Indication: MULTIPLE MYELOMA
     Dosage: 50 MG, 200 MG - 50 MG BEDTIME EVERYOTHER NIGHT, ORAL
     Route: 048
     Dates: start: 20060408, end: 20080608
  2. DEXAMETHASONE [Suspect]
     Indication: DRUG USE FOR UNKNOWN INDICATION
     Dosage: 4 MG, X 5 DAYS 1-4, 8-11, EVERY 28 DAYS, ORAL
     Route: 048
     Dates: start: 20060408, end: 20080529
  3. VELCADE [Suspect]
     Indication: MULTIPLE MYELOMA
     Dosage: 1 FEG/M2
     Dates: start: 20060405, end: 20080530
  4. CISPLATIN [Suspect]
     Indication: MULTIPLE MYELOMA
     Dosage: 10MG/M2-7.5MG/M2
     Dates: start: 20060408, end: 20070407
  5. ADRIAMYCIN PFS [Suspect]
     Indication: MULTIPLE MYELOMA
     Dosage: 10MG/M2-7.5MG/M2
     Dates: start: 20060408, end: 20070407
  6. CYCLOPHOSPHAMIDE [Suspect]
     Indication: MULTIPLE MYELOMA
     Dosage: 400MG/M2-300MG/M-2
     Dates: start: 20060408, end: 20070407
  7. ETOPOSIDE [Suspect]
     Indication: MULTIPLE MYELOMA
     Dosage: 40MG/M2-3MG/M2
     Dates: start: 20060408, end: 20070407
  8. MELPHALAN (MELPHALAN) [Suspect]
     Indication: MULTIPLE MYELOMA
     Dosage: 140 FEG/M2
     Dates: start: 20060620, end: 20061006
  9. PROCRIT (ERYTHROPOIETIN) (SOLUTION) [Concomitant]
  10. OXYCODONE (OXYCODONE) (TABLETS) [Concomitant]
  11. AMBIEN CR [Concomitant]
  12. ACYCLOVIR (ACICLOVIR) (TABLETS) [Concomitant]
  13. RANITIDINE HCL (RANITIDINE) (TABLETS) [Concomitant]
  14. MULTIVITAMINS (MULTIVITAMINS) (TABLETS) [Concomitant]
  15. ASPIRIN [Concomitant]
  16. K-DUR (POTASSIUM CHLORIDE) (TABLETS) [Concomitant]
  17. LEVAQUIN [Concomitant]
  18. LOVENOX [Concomitant]
  19. COMBIVENT (COMBIVENT) (AEROSOL FOR INHALATION) [Concomitant]
  20. MAGNESIUM (MAGNESIUM) [Concomitant]

REACTIONS (1)
  - ATRIAL FIBRILLATION [None]
